FAERS Safety Report 4415361-7 (Version None)
Quarter: 2004Q3

REPORT INFORMATION
  Report Type: 
  Country: None (occurrence: None)
  Receive Date: 20040804
  Receipt Date: 20040804
  Transmission Date: 20050211
  Serious: Yes (Hospitalization)
  Sender: FDA-Public Use
  Company Number: None

PATIENT
  Age: 87 Year
  Sex: Male
  Weight: 171 kg

DRUGS (1)
  1. CRESTOR [Suspect]
     Indication: BLOOD CHOLESTEROL INCREASED
     Dosage: 1-10 MG PER DAY
     Dates: start: 20040302

REACTIONS (9)
  - ARTHRALGIA [None]
  - DIFFICULTY IN WALKING [None]
  - DIZZINESS [None]
  - JOINT STIFFNESS [None]
  - MYALGIA [None]
  - PAIN [None]
  - PNEUMONIA [None]
  - POISONING [None]
  - PYREXIA [None]
